FAERS Safety Report 11309708 (Version 2)
Quarter: 2015Q3

REPORT INFORMATION
  Report Type: Report from Study
  Country: AU (occurrence: NZ)
  Receive Date: 20150724
  Receipt Date: 20150812
  Transmission Date: 20151125
  Serious: Yes (Disabling, Other)
  Sender: FDA-Public Use
  Company Number: PHHY2015NZ087455

PATIENT
  Sex: Male
  Weight: 145.1 kg

DRUGS (3)
  1. CLOZARIL [Suspect]
     Active Substance: CLOZAPINE
     Indication: SCHIZOPHRENIA
     Route: 048
     Dates: start: 20070821
  2. CLOZARIL [Suspect]
     Active Substance: CLOZAPINE
     Dosage: 200 MG
     Route: 048
     Dates: start: 20140821
  3. CLOZARIL [Suspect]
     Active Substance: CLOZAPINE
     Dosage: 50 MG
     Route: 048
     Dates: end: 20150610

REACTIONS (4)
  - Diabetes mellitus [Not Recovered/Not Resolved]
  - Weight increased [Recovering/Resolving]
  - Cellulitis [Recovered/Resolved]
  - Increased appetite [Unknown]
